FAERS Safety Report 7878993-X (Version None)
Quarter: 2011Q4

REPORT INFORMATION
  Report Type: 
  Country: None (occurrence: None)
  Receive Date: 20111101
  Receipt Date: 20111020
  Transmission Date: 20120403
  Serious: Yes (Hospitalization, Other)
  Sender: FDA-Public Use
  Company Number: PHHY2011DE93025

PATIENT
  Age: 50 Year
  Sex: Male

DRUGS (1)
  1. CLOZAPINE [Suspect]
     Indication: PSYCHOTIC DISORDER
     Dosage: 350 MG DAILY
     Dates: start: 20110914

REACTIONS (9)
  - MITRAL VALVE INCOMPETENCE [None]
  - COAGULATION TIME SHORTENED [None]
  - BLOOD CREATINE PHOSPHOKINASE INCREASED [None]
  - CARDIAC FAILURE [None]
  - DILATATION VENTRICULAR [None]
  - BLOOD CREATINE PHOSPHOKINASE MB INCREASED [None]
  - BRONCHOPNEUMONIA [None]
  - EJECTION FRACTION DECREASED [None]
  - C-REACTIVE PROTEIN INCREASED [None]
